FAERS Safety Report 8378310-5 (Version None)
Quarter: 2012Q2

REPORT INFORMATION
  Report Type: 
  Country: None (occurrence: None)
  Receive Date: 20120522
  Receipt Date: 20120518
  Transmission Date: 20120825
  Serious: Yes (Other)
  Sender: FDA-Public Use
  Company Number: US-PFIZER INC-2011065056

PATIENT
  Sex: Female
  Weight: 63.039 kg

DRUGS (6)
  1. MILNACIPRAN HYDROCHLORIDE [Concomitant]
     Indication: OSTEOARTHRITIS
     Dosage: UNK
  2. LYRICA [Suspect]
     Indication: FIBROMYALGIA
     Dosage: 50 MG, 2X/DAY
     Route: 048
     Dates: start: 20090101
  3. ESTRACE [Concomitant]
     Dosage: UNK, DAILY
  4. ADVAIR DISKUS 100/50 [Concomitant]
     Indication: ASTHMA
     Dosage: UNK
  5. CEFACLOR [Concomitant]
     Indication: ASTHMA
     Dosage: UNK
  6. FOSAMAX [Concomitant]
     Dosage: UNK

REACTIONS (6)
  - HERPES ZOSTER [None]
  - EYE INFECTION [None]
  - APHASIA [None]
  - FIBROMYALGIA [None]
  - MUSCLE SPASMS [None]
  - AMNESIA [None]
